FAERS Safety Report 14479233 (Version 2)
Quarter: 2018Q1

REPORT INFORMATION
  Report Type: Report from Study
  Country: FR (occurrence: FR)
  Receive Date: 20180202
  Receipt Date: 20180228
  Transmission Date: 20180509
  Serious: Yes (Other)
  Sender: FDA-Public Use
  Company Number: FR-ROCHE-2060416

PATIENT
  Sex: Male

DRUGS (8)
  1. ESBRIET [Suspect]
     Active Substance: PIRFENIDONE
     Indication: PULMONARY FIBROSIS
     Route: 048
     Dates: start: 20180116, end: 20180117
  2. VALSARTAN. [Concomitant]
     Active Substance: VALSARTAN
     Route: 065
  3. SOTALOL. [Concomitant]
     Active Substance: SOTALOL
     Route: 065
  4. PREGABALINE [Concomitant]
     Active Substance: PREGABALIN
     Route: 065
  5. ESOMEPRAZOLE [Concomitant]
     Active Substance: ESOMEPRAZOLE
     Route: 065
  6. ADENURIC [Concomitant]
     Active Substance: FEBUXOSTAT
     Route: 065
  7. PROCORALAN [Concomitant]
     Active Substance: IVABRADINE
     Route: 065
  8. ASPIRINE PROTECT [Concomitant]
     Active Substance: ASPIRIN
     Route: 065

REACTIONS (4)
  - Gingival discolouration [Not Recovered/Not Resolved]
  - Hypersensitivity [Not Recovered/Not Resolved]
  - Lip swelling [Not Recovered/Not Resolved]
  - Lip discolouration [Not Recovered/Not Resolved]
